FAERS Safety Report 4747107-7 (Version None)
Quarter: 2005Q3

REPORT INFORMATION
  Report Type: 
  Country: None (occurrence: None)
  Receive Date: 20050815
  Receipt Date: 20050805
  Transmission Date: 20060218
  Serious: Yes (Hospitalization)
  Sender: FDA-Public Use
  Company Number: HQWYE762008AUG05

PATIENT
  Age: 48 Year
  Sex: Female
  Weight: 79.9 kg

DRUGS (2)
  1. PREMPRO [Suspect]
     Indication: HOT FLUSH
     Dosage: 0.3MG/1.5MG DAILY, ORAL
     Route: 048
     Dates: start: 20050501
  2. PREMPRO [Suspect]
     Indication: MENOPAUSE
     Dosage: 0.3MG/1.5MG DAILY, ORAL
     Route: 048
     Dates: start: 20050501

REACTIONS (3)
  - BLINDNESS UNILATERAL [None]
  - BRAIN OEDEMA [None]
  - OPTIC NERVE DISORDER [None]
